FAERS Safety Report 23166876 (Version 1)
Quarter: 2023Q4

REPORT INFORMATION
  Report Type: Spontaneous
  Country: US (occurrence: None)
  Receive Date: 20231109
  Receipt Date: 20231109
  Transmission Date: 20240110
  Serious: No
  Sender: FDA-Public Use
  Company Number: None

PATIENT
  Age: 56 Year
  Sex: Female
  Weight: 92.5 kg

DRUGS (2)
  1. ORSERDU [Suspect]
     Active Substance: ELACESTRANT
     Indication: Breast cancer metastatic
     Dosage: FREQUENCY : DAILY;?
     Route: 048
     Dates: start: 20231016, end: 20231108
  2. ORSERDU [Suspect]
     Active Substance: ELACESTRANT
     Indication: Hormone receptor positive breast cancer

REACTIONS (8)
  - Rash [None]
  - Pyrexia [None]
  - Swelling face [None]
  - Therapy interrupted [None]
  - Drug rechallenge positive [None]
  - Eye swelling [None]
  - Lip swelling [None]
  - Drug hypersensitivity [None]

NARRATIVE: CASE EVENT DATE: 20231108
